FAERS Safety Report 21927329 (Version 1)
Quarter: 2023Q1

REPORT INFORMATION
  Report Type: Spontaneous
  Country: US (occurrence: None)
  Receive Date: 20230129
  Receipt Date: 20230129
  Transmission Date: 20230417
  Serious: Yes (Other)
  Sender: FDA-Public Use
  Company Number: None

PATIENT
  Age: 67 Year
  Sex: Male

DRUGS (12)
  1. BUPRENORPHINE [Suspect]
     Active Substance: BUPRENORPHINE
     Indication: Pain
     Dates: start: 20210513, end: 20230124
  2. LIPITOR [Concomitant]
     Active Substance: ATORVASTATIN CALCIUM
  3. OMEPRAZOLE [Concomitant]
     Active Substance: OMEPRAZOLE
  4. ASPIRIN [Concomitant]
     Active Substance: ASPIRIN
  5. WELLBUTRIN [Concomitant]
     Active Substance: BUPROPION HYDROCHLORIDE
  6. ZOLOFT [Concomitant]
     Active Substance: SERTRALINE HYDROCHLORIDE
  7. Hydrochloathiazde [Concomitant]
  8. Tolprol [Concomitant]
  9. NEUROTIN [Concomitant]
     Active Substance: GABAPENTIN
  10. Methoearbamol [Concomitant]
  11. BUPRENORPHINE [Concomitant]
     Active Substance: BUPRENORPHINE
  12. VITAMINS [Concomitant]
     Active Substance: VITAMINS

REACTIONS (9)
  - Pain [None]
  - Muscle spasms [None]
  - Asthenia [None]
  - Infection [None]
  - Nasopharyngitis [None]
  - Muscle tightness [None]
  - Product use issue [None]
  - Hypokinesia [None]
  - Therapy cessation [None]

NARRATIVE: CASE EVENT DATE: 20230104
